FAERS Safety Report 20902099 (Version 2)
Quarter: 2022Q2

REPORT INFORMATION
  Report Type: Spontaneous
  Country: US (occurrence: US)
  Receive Date: 20220601
  Receipt Date: 20220628
  Transmission Date: 20220720
  Serious: No
  Sender: FDA-Public Use
  Company Number: US-PFIZER INC-202200771427

PATIENT
  Age: 56 Year
  Sex: Female
  Weight: 90.703 kg

DRUGS (70)
  1. PAXLOVID [Suspect]
     Active Substance: NIRMATRELVIR\RITONAVIR
     Indication: COVID-19 treatment
     Dosage: [PF-07321332 300 MG]/[RITONAVIR 100 MG]; 2X/DAY
     Route: 048
     Dates: start: 20220516, end: 20220520
  2. MS CONTIN [Concomitant]
     Active Substance: MORPHINE SULFATE
     Dosage: UNK
     Dates: start: 20220501
  3. MS CONTIN [Concomitant]
     Active Substance: MORPHINE SULFATE
     Dosage: 60 MG, 2X/DAY
     Route: 048
     Dates: start: 20220526
  4. NEXLIZET [Concomitant]
     Active Substance: BEMPEDOIC ACID\EZETIMIBE
     Dosage: DAILY(180-10MG TABLET)
     Route: 048
     Dates: start: 20220526
  5. MOBIC [Concomitant]
     Active Substance: MELOXICAM
     Dosage: 15 MG, 1X/DAY
     Route: 048
  6. DULEX [DULOXETINE HYDROCHLORIDE] [Concomitant]
     Dosage: 20 MG, 1X/DAY
     Route: 048
  7. DULEX [DULOXETINE HYDROCHLORIDE] [Concomitant]
     Dosage: 60 MG, 1X/DAY
     Route: 048
     Dates: start: 20171027
  8. VYEPTI [Concomitant]
     Active Substance: EPTINEZUMAB-JJMR
     Dosage: 100 MG, EVERY 3 MONTHS
     Route: 042
  9. SYNTHROID [Concomitant]
     Active Substance: LEVOTHYROXINE SODIUM
     Dosage: 88 UG, 1X/DAY
     Route: 048
     Dates: start: 20220427
  10. CYTOMEL [Concomitant]
     Active Substance: LIOTHYRONINE SODIUM
     Dosage: 5 UG, 2X/DAY
     Route: 048
     Dates: start: 20220427
  11. RHOFADE [Concomitant]
     Active Substance: OXYMETAZOLINE HYDROCHLORIDE
     Dosage: 1 %, DAILY(1 APPLICATION)
     Dates: start: 20211015
  12. IMVEXXY [Concomitant]
     Active Substance: ESTRADIOL
     Dosage: 1 UG, DAILY(10MCG INSERT)
     Route: 067
     Dates: start: 20210219
  13. PROMETHAZINE HCL FRESENIUS [Concomitant]
     Dosage: 25 MG, 4X/DAY
     Route: 048
     Dates: start: 20220616
  14. VALIUM [Concomitant]
     Active Substance: DIAZEPAM
     Dosage: 5 MG, 1X/DAY (PM)
     Route: 048
     Dates: start: 20220526
  15. MAXALT MELT [Concomitant]
     Dosage: 10 MG STAT
     Route: 048
     Dates: start: 20220429
  16. ONDANSETRON [Concomitant]
     Active Substance: ONDANSETRON
     Dosage: 8 MG(EVERY 8 HRS)
     Route: 048
     Dates: start: 20220310
  17. MORPHINE SULFATE [Concomitant]
     Active Substance: MORPHINE SULFATE
     Dosage: 15 MG, AS NEEDED
     Route: 048
     Dates: start: 20151016, end: 20160108
  18. MORPHINE SULFATE [Concomitant]
     Active Substance: MORPHINE SULFATE
     Dosage: 15 MG, EVERY 4 HRS(AS NEEDED)
     Route: 048
     Dates: start: 20220310
  19. IPRATROPIUM BROMIDE IVAX [Concomitant]
     Dosage: 2X/DAY
     Route: 045
     Dates: start: 20220314, end: 20220420
  20. DOXEPIN HYDROCHLORIDE [Concomitant]
     Active Substance: DOXEPIN HYDROCHLORIDE
     Dosage: 10 MG, 1X/DAY(1 HR BEFORE BEDTIME)
     Route: 048
     Dates: start: 20220120
  21. MODAFINIL [Concomitant]
     Active Substance: MODAFINIL
     Dosage: 200 MG, 2X/DAY
     Route: 048
     Dates: start: 20211213
  22. MODAFINIL [Concomitant]
     Active Substance: MODAFINIL
     Dosage: 100 MG, 1X/DAY
     Route: 048
  23. BACTRIM DS [Concomitant]
     Active Substance: SULFAMETHOXAZOLE\TRIMETHOPRIM
     Dosage: 2X/DAY(800-160MG)
     Route: 048
     Dates: start: 20211115, end: 20211213
  24. BACTRIM DS [Concomitant]
     Active Substance: SULFAMETHOXAZOLE\TRIMETHOPRIM
     Dosage: AS NEEDED(800-160MG TABLET)
     Route: 048
  25. CRESTOR [Concomitant]
     Active Substance: ROSUVASTATIN CALCIUM
     Dosage: 20 MG, 1X/DAY
     Route: 048
     Dates: start: 20210604
  26. SPRIX [Concomitant]
     Active Substance: KETOROLAC TROMETHAMINE
     Dosage: 15.75 MG( EVERY 6 HRS)
     Route: 045
     Dates: start: 20201228, end: 20210219
  27. CELEBREX [Concomitant]
     Active Substance: CELECOXIB
     Dosage: 200 MG, 2X/DAY
     Route: 048
     Dates: start: 20201120
  28. AIMOVIG [Concomitant]
     Active Substance: ERENUMAB-AOOE
     Dosage: 140 MG/ML, MONTHLY
     Route: 058
     Dates: start: 20201029
  29. LINZESS [Concomitant]
     Active Substance: LINACLOTIDE
     Dosage: 290 UG, 2X/DAY
     Route: 048
     Dates: start: 20201001
  30. MOVANTIK [Concomitant]
     Active Substance: NALOXEGOL OXALATE
     Dosage: 25 MG, 1X/DAY(30 MIN AC)
     Route: 048
     Dates: start: 20200520
  31. ADDERALL [Concomitant]
     Active Substance: AMPHETAMINE ASPARTATE\AMPHETAMINE SULFATE\DEXTROAMPHETAMINE SACCHARATE\DEXTROAMPHETAMINE SULFATE
     Dosage: 20 MG, 2X/DAY
     Route: 048
     Dates: start: 20200520
  32. UBRELVY [Concomitant]
     Active Substance: UBROGEPANT
     Dosage: 100 MG, AS NEEDED
     Route: 048
     Dates: start: 20200520, end: 20210803
  33. CHLORMEZANONE [Concomitant]
     Active Substance: CHLORMEZANONE
     Dosage: 30 MG, AS NEEDED(AT BEDTIME)
     Route: 048
     Dates: start: 20151016
  34. LYRICA [Concomitant]
     Active Substance: PREGABALIN
     Dosage: 25 MG, 2X/DAY
     Route: 048
     Dates: start: 20150209
  35. NEURONTIN [Concomitant]
     Active Substance: GABAPENTIN
     Dosage: 300 MG, AS DIRECTED
     Route: 048
     Dates: start: 20140415
  36. INVANZ [Concomitant]
     Active Substance: ERTAPENEM SODIUM
     Dosage: 1 G, 2X/DAY
     Route: 042
  37. AMOXICILLIN [Concomitant]
     Active Substance: AMOXICILLIN
     Dosage: 500 MG, AS NEEDED
     Route: 048
  38. AMOXICILLIN [Concomitant]
     Active Substance: AMOXICILLIN
     Dosage: 250 MG, 2X/DAY
     Route: 048
  39. AMOXICILLIN [Concomitant]
     Active Substance: AMOXICILLIN
     Dosage: 500 MG, 2X/DAY
     Route: 048
  40. THYROID [Concomitant]
     Active Substance: LEVOTHYROXINE\LIOTHYRONINE
     Dosage: 97.2 MG, DAILY
     Route: 048
  41. LIDODERM [Concomitant]
     Active Substance: LIDOCAINE
     Dosage: 5%, 1 PATCH 12 HRS ON, 12 HRS OFF
  42. BACTRIM [Concomitant]
     Active Substance: SULFAMETHOXAZOLE\TRIMETHOPRIM
     Dosage: 2X/DAY
     Route: 048
  43. RIFAMPIN [Concomitant]
     Active Substance: RIFAMPIN
     Dosage: 300 MG, 2X/DAY
     Route: 048
     Dates: end: 20161007
  44. VANCOMYCIN HYDROCHLORIDE [Concomitant]
     Active Substance: VANCOMYCIN HYDROCHLORIDE
     Dosage: 1500 MG, 2X/DAY
     Route: 042
     Dates: end: 20161007
  45. VITAMIN C [Concomitant]
     Active Substance: ASCORBIC ACID
     Dosage: DAILY
     Route: 048
  46. MAGNESIUM CHLORIDE ANHYDROUS [Concomitant]
     Active Substance: MAGNESIUM CHLORIDE ANHYDROUS
     Indication: Migraine
     Dosage: DAILY, 20%, HALF DROPPER INJECTION
  47. CYANOCOBALAMIN [Concomitant]
     Active Substance: CYANOCOBALAMIN
     Dosage: DAILY
     Route: 048
  48. MOMETASONE FUROATE [Concomitant]
     Active Substance: MOMETASONE FUROATE
     Dosage: 50MCG/ACT, 1-2 SPRAY EACH NOSTRIL DAILY
     Route: 045
     Dates: end: 20140311
  49. NORETHINDRONE [Concomitant]
     Active Substance: NORETHINDRONE
     Dosage: 0.35 MG, DAILY
  50. LIOTHYRONINE SODIUM [Concomitant]
     Active Substance: LIOTHYRONINE SODIUM
     Dosage: 5 UG, 2X/DAY
     Route: 048
  51. EMGALITY [Concomitant]
     Active Substance: GALCANEZUMAB-GNLM
     Dosage: 120 MG/ML, MONTHLY
     Route: 058
     Dates: start: 20190812
  52. METROGEL [Concomitant]
     Active Substance: METRONIDAZOLE
     Dosage: EVERY 5 HOURS
     Route: 067
     Dates: start: 20191223, end: 20200227
  53. AMBIEN CR [Concomitant]
     Active Substance: ZOLPIDEM TARTRATE
     Dosage: 12.5 MG, 1X/DAY(AT BEDTIME)
     Route: 048
     Dates: start: 20191119
  54. BUTALBITAL AND ACETAMINOPHEN [Concomitant]
     Active Substance: ACETAMINOPHEN\BUTALBITAL
     Indication: Migraine
     Dosage: AS NEEDED, (1-2 EVERY 4 HR)
     Route: 048
     Dates: start: 20191119, end: 20200624
  55. TRANSDERM-SCOP TRANSDERMAL THERAPEUTIC SYSTEM [Concomitant]
     Indication: Motion sickness
     Dosage: AS NEEDED/AS DIRECTED
     Route: 062
     Dates: start: 20190701, end: 20200520
  56. LIPTOR [ATORVASTATIN] [Concomitant]
     Dosage: 20 MG, 1X/DAY
     Route: 048
     Dates: start: 20190307
  57. AMITIZA [Concomitant]
     Active Substance: LUBIPROSTONE
     Dosage: 24 UG, 2X/DAY
     Route: 048
     Dates: start: 20180824
  58. TIZANIDINE HYDROCHLORIDE [Concomitant]
     Active Substance: TIZANIDINE HYDROCHLORIDE
     Dosage: 4 MG, 3X/DAY
     Route: 048
     Dates: start: 20180301, end: 20180404
  59. VERAPAMIL HCL [Concomitant]
     Active Substance: VERAPAMIL HYDROCHLORIDE
     Dosage: 180 MG, 1X/DAY
     Route: 048
     Dates: start: 20171130, end: 20180404
  60. HYDROXYZINE HYDROCHLORIDE [Concomitant]
     Active Substance: HYDROXYZINE HYDROCHLORIDE
     Dosage: 25 MG, AS NEEDED (EVERY 4 HRS)
     Route: 048
     Dates: start: 20171124
  61. VENTOLIN HFA [Concomitant]
     Active Substance: ALBUTEROL SULFATE
     Dosage: AS NEEDED, 2 PUFF EVERY 4 HR
     Dates: start: 20170912, end: 20180517
  62. CLINDAMYCIN HYDROCHLORIDE [Concomitant]
     Active Substance: CLINDAMYCIN HYDROCHLORIDE
     Dosage: 150 MG, 3X/DAY
     Route: 048
     Dates: start: 20170912, end: 20171027
  63. IBUPROFEN [Concomitant]
     Active Substance: IBUPROFEN
     Dosage: 800 MG, 3X/DAY
     Route: 048
     Dates: start: 20170818, end: 20200624
  64. AMBIEN [Concomitant]
     Active Substance: ZOLPIDEM TARTRATE
     Dosage: 5 MG, AS NEEDED
     Route: 048
     Dates: start: 20170622, end: 20170622
  65. FOLBIC [Concomitant]
     Active Substance: CYANOCOBALAMIN\FOLIC ACID\PYRIDOXINE
     Dosage: 1X/DAY
     Route: 048
     Dates: start: 20170313
  66. TOPAMAX [Concomitant]
     Active Substance: TOPIRAMATE
     Dosage: 50 MG, 2X/DAY
     Route: 048
     Dates: start: 20170303
  67. RELPAX [Concomitant]
     Active Substance: ELETRIPTAN HYDROBROMIDE
     Indication: Migraine
     Dosage: 20 MG, AS NEEDED
     Route: 048
     Dates: start: 20161104, end: 20170106
  68. EVZIO [Concomitant]
     Active Substance: NALOXONE HYDROCHLORIDE
     Dosage: 0.1 MG/ML
     Dates: start: 20160311, end: 20160707
  69. CLEMASTINE FUMARATE [Concomitant]
     Active Substance: CLEMASTINE FUMARATE
     Dosage: 2.68 MG, 2X/DAY
     Route: 048
     Dates: start: 20160108, end: 20160512
  70. RESTORA [Concomitant]
     Dosage: 30 MG, 1X/DAY
     Route: 048
     Dates: start: 20151016

REACTIONS (2)
  - COVID-19 [Not Recovered/Not Resolved]
  - Disease recurrence [Not Recovered/Not Resolved]

NARRATIVE: CASE EVENT DATE: 20220526
